FAERS Safety Report 4342785-9 (Version None)
Quarter: 2004Q2

REPORT INFORMATION
  Report Type: 
  Country: None (occurrence: None)
  Receive Date: 20040416
  Receipt Date: 20040406
  Transmission Date: 20050107
  Serious: Yes (Death)
  Sender: FDA-Public Use
  Company Number: 163-20785-04030072

PATIENT
  Age: 50 Year
  Sex: Male

DRUGS (1)
  1. THALOMID [Suspect]
     Indication: COLON CANCER
     Dosage: 100 MG, DAILY, ORAL
     Route: 048
     Dates: start: 20031212, end: 20040101

REACTIONS (2)
  - COLON CANCER [None]
  - MALIGNANT NEOPLASM PROGRESSION [None]
